FAERS Safety Report 6160475-7 (Version None)
Quarter: 2009Q2

REPORT INFORMATION
  Report Type: 
  Country: None (occurrence: None)
  Receive Date: 20090415
  Receipt Date: 20090415
  Transmission Date: 20091009
  Serious: Yes (Hospitalization)
  Sender: FDA-Public Use
  Company Number: None

PATIENT
  Sex: Male
  Weight: 77 kg

DRUGS (34)
  1. SORAFENIB 600 MG [Suspect]
     Indication: MALIGNANT MELANOMA
     Dosage: 200 MG, PO, Q AM
     Route: 048
     Dates: start: 20090402, end: 20090412
  2. SORAFENIB [Concomitant]
  3. ZOFRAN [Concomitant]
  4. CEFAZOLIN INJ. [Concomitant]
  5. CEFAZOLIN INJ. [Concomitant]
  6. OXYCODONE HCL [Concomitant]
  7. MORPHINE [Concomitant]
  8. PORT CHLORIDE [Concomitant]
  9. LOVENOX [Concomitant]
  10. DECADRON [Concomitant]
  11. PROTONIX [Concomitant]
  12. PHENGRAN [Concomitant]
  13. ZOFRAN [Concomitant]
  14. TYLENOL [Concomitant]
  15. HEXTEND [Concomitant]
  16. LACTATED RINGER'S [Concomitant]
  17. CEFAZOLIN [Concomitant]
  18. FENTANYL [Concomitant]
  19. GLYCOPYRROLAGE [Concomitant]
  20. HEPARIN [Concomitant]
  21. LIDOCAINE [Concomitant]
  22. NEOSTIGMINE [Concomitant]
  23. ONDANESTRON [Concomitant]
  24. PROPOFOL [Concomitant]
  25. PROTAMINE SULFATE [Concomitant]
  26. REMIFENTANIL [Concomitant]
  27. VECURONIUM BROMIDE [Concomitant]
  28. LECTED RINGERS [Concomitant]
  29. CEFAZOLIN [Concomitant]
  30. HYDROMORPHONE HCL [Concomitant]
  31. LIDOCAINE [Concomitant]
  32. PHENYLEPHRINE [Concomitant]
  33. PROPOFOL [Concomitant]
  34. SUFENTANIL [Concomitant]

REACTIONS (5)
  - BLOOD BILIRUBIN ABNORMAL [None]
  - BLOOD CREATINE PHOSPHOKINASE ABNORMAL [None]
  - COMPARTMENT SYNDROME [None]
  - MUSCLE SWELLING [None]
  - PARAESTHESIA [None]
